FAERS Safety Report 7249792-7 (Version None)
Quarter: 2011Q1

REPORT INFORMATION
  Report Type: 
  Country: None (occurrence: None)
  Receive Date: 20110128
  Receipt Date: 20100413
  Transmission Date: 20110831
  Serious: No
  Sender: FDA-Public Use
  Company Number: A0852899A

PATIENT
  Sex: Female

DRUGS (4)
  1. ARICEPT [Concomitant]
  2. WELLBUTRIN [Suspect]
     Indication: SLEEP DISORDER
     Route: 048
  3. RESTORIL [Concomitant]
  4. AMBIEN [Concomitant]

REACTIONS (2)
  - OFF LABEL USE [None]
  - ADVERSE EVENT [None]
